FAERS Safety Report 5356979-7 (Version None)
Quarter: 2007Q2

REPORT INFORMATION
  Report Type: 
  Country: None (occurrence: None)
  Receive Date: 20070612
  Receipt Date: 20070612
  Transmission Date: 20071010
  Serious: Yes (Other)
  Sender: FDA-Public Use
  Company Number: None

PATIENT
  Sex: Female
  Weight: 92.9874 kg

DRUGS (19)
  1. MOBIC [Suspect]
     Indication: FIBROMYALGIA
     Dosage: 15MG 1/2 - 1 P/O Q DAY
     Route: 048
     Dates: start: 19990101
  2. MOBIC [Suspect]
     Indication: GASTROOESOPHAGEAL REFLUX DISEASE
     Dosage: 15MG 1/2 - 1 P/O Q DAY
     Route: 048
     Dates: start: 19990101
  3. MOBIC [Suspect]
     Indication: OSTEOARTHRITIS
     Dosage: 15MG 1/2 - 1 P/O Q DAY
     Route: 048
     Dates: start: 19990101
  4. PERCOCET [Concomitant]
  5. DURAGESIC-100 [Concomitant]
  6. LOTREL [Concomitant]
  7. CLONIDINE [Concomitant]
  8. ALLEGRA D 24 HOUR [Concomitant]
  9. NASACORT [Concomitant]
  10. ACIPHEX [Concomitant]
  11. CYMBALTA [Concomitant]
  12. HYDROCHLOROTHIAZIDE [Concomitant]
  13. NORCO [Concomitant]
  14. TOPAMAX [Concomitant]
  15. REQUIP [Concomitant]
  16. ACTOS [Concomitant]
  17. AMBIEN CR [Concomitant]
  18. AMITIZA [Concomitant]
  19. MOBIC [Concomitant]

REACTIONS (2)
  - DRUG INEFFECTIVE [None]
  - THERAPEUTIC RESPONSE UNEXPECTED WITH DRUG SUBSTITUTION [None]
